FAERS Safety Report 18169419 (Version 1)
Quarter: 2020Q3

REPORT INFORMATION
  Report Type: Spontaneous
  Country: US (occurrence: US)
  Receive Date: 20200819
  Receipt Date: 20200819
  Transmission Date: 20201103
  Serious: Yes (Death, Life-Threatening, Hospitalization)
  Sender: FDA-Public Use
  Company Number: US-STRIDES ARCOLAB LIMITED-2020SP009503

PATIENT
  Age: 59 Year
  Sex: Female

DRUGS (5)
  1. LOSARTAN. [Concomitant]
     Active Substance: LOSARTAN
     Indication: PRODUCT USED FOR UNKNOWN INDICATION
     Dosage: UNK
     Route: 065
     Dates: end: 20200320
  2. TACROLIMUS. [Interacting]
     Active Substance: TACROLIMUS
     Indication: HEART TRANSPLANT
     Dosage: 6 MILLIGRAM, BID
     Route: 065
     Dates: start: 2012, end: 202003
  3. LOPINAVIR/RITONAVIR [Interacting]
     Active Substance: LOPINAVIR\RITONAVIR
     Indication: COVID-19
     Dosage: 400 MILLIGRAM, BID
     Route: 065
     Dates: start: 20200320, end: 20200324
  4. MYCOPHENOLATE MOFETIL. [Suspect]
     Active Substance: MYCOPHENOLATE MOFETIL
     Indication: HEART TRANSPLANT
     Dosage: 360 MILLIGRAM, BID
     Route: 065
     Dates: start: 2012, end: 20200320
  5. TACROLIMUS. [Interacting]
     Active Substance: TACROLIMUS
     Dosage: UNK, 1 DOSE WITH 60 PERCENT DOSE REDUCTION
     Route: 065
     Dates: start: 202003, end: 202003

REACTIONS (14)
  - Multiple organ dysfunction syndrome [Fatal]
  - COVID-19 [Unknown]
  - Acute respiratory distress syndrome [Unknown]
  - Respiratory failure [Unknown]
  - Fatigue [Unknown]
  - Diarrhoea [Unknown]
  - Productive cough [Unknown]
  - Drug interaction [Unknown]
  - Myalgia [Unknown]
  - Pneumocystis jirovecii pneumonia [Unknown]
  - Lung opacity [Unknown]
  - Pyrexia [Unknown]
  - Dyspnoea [Unknown]
  - Leukocytosis [Unknown]

NARRATIVE: CASE EVENT DATE: 2020
